FAERS Safety Report 23160465 (Version 1)
Quarter: 2023Q4

REPORT INFORMATION
  Report Type: Spontaneous
  Country: CN (occurrence: CN)
  Receive Date: 20231108
  Receipt Date: 20231108
  Transmission Date: 20240110
  Serious: Yes (Hospitalization, Other)
  Sender: FDA-Public Use
  Company Number: CN-009507513-2311CHN001607

PATIENT
  Age: 70 Year
  Sex: Male
  Weight: 67 kg

DRUGS (1)
  1. KEYTRUDA [Suspect]
     Active Substance: PEMBROLIZUMAB
     Indication: Symptomatic treatment
     Dosage: 200 MILLIGRAM, ONCE
     Route: 041
     Dates: start: 20230823, end: 20230823

REACTIONS (3)
  - Acute hepatic failure [Recovering/Resolving]
  - Immune-mediated hepatitis [Unknown]
  - Asthenia [Unknown]

NARRATIVE: CASE EVENT DATE: 20230101
